FAERS Safety Report 4757302-9 (Version None)
Quarter: 2005Q3

REPORT INFORMATION
  Report Type: 
  Country: None (occurrence: None)
  Receive Date: 20050831
  Receipt Date: 20050824
  Transmission Date: 20060218
  Serious: Yes (Other)
  Sender: FDA-Public Use
  Company Number: BW-BRISTOL-MYERS SQUIBB COMPANY-13091251

PATIENT
  Age: 52 Year
  Sex: Female

DRUGS (3)
  1. EFAVIRENZ [Suspect]
     Indication: HIV INFECTION
     Dates: start: 20040924
  2. STAVUDINE [Suspect]
     Indication: HIV INFECTION
     Dates: start: 20040924
  3. LAMIVUDINE [Suspect]
     Indication: HIV INFECTION
     Dates: start: 20040924

REACTIONS (6)
  - DYSPEPSIA [None]
  - DYSPNOEA [None]
  - LACTIC ACIDOSIS [None]
  - NAUSEA [None]
  - PRODUCTIVE COUGH [None]
  - VOMITING [None]
